FAERS Safety Report 15792041 (Version 2)
Quarter: 2020Q2

REPORT INFORMATION
  Report Type: Report from Study
  Country: None (occurrence: CA)
  Receive Date: 20190106
  Receipt Date: 20200408
  Transmission Date: 20200713
  Serious: Yes (Other)
  Sender: FDA-Public Use
  Company Number: CA-ABBVIE-19K-028-2613745-00

PATIENT
  Sex: Female

DRUGS (1)
  1. HUMIRA [Suspect]
     Active Substance: ADALIMUMAB
     Indication: CROHN^S DISEASE
     Route: 058
     Dates: start: 20081212, end: 201911

REACTIONS (4)
  - Crohn^s disease [Unknown]
  - Stress [Unknown]
  - Pyoderma gangrenosum [Not Recovered/Not Resolved]
  - Therapeutic product effect incomplete [Unknown]
